FAERS Safety Report 4758579-6 (Version None)
Quarter: 2005Q3

REPORT INFORMATION
  Report Type: 
  Country: None (occurrence: None)
  Receive Date: 20050901
  Receipt Date: 20050824
  Transmission Date: 20060218
  Serious: Yes (Other)
  Sender: FDA-Public Use
  Company Number: AU-JNJFOC-20050805481

PATIENT
  Age: 60 Year
  Sex: Male

DRUGS (6)
  1. REMINYL [Suspect]
     Route: 048
  2. REMINYL [Suspect]
     Route: 048
  3. LIPITOR [Suspect]
     Indication: DRUG USE FOR UNKNOWN INDICATION
     Dosage: DOSE UNSPECIFIED
  4. ATENOLOL [Concomitant]
  5. ASPIRIN [Concomitant]
  6. STABLON [Concomitant]

REACTIONS (1)
  - VITREOUS DETACHMENT [None]
